FAERS Safety Report 14487379 (Version 1)
Quarter: 2018Q1

REPORT INFORMATION
  Report Type: Spontaneous
  Country: US (occurrence: US)
  Receive Date: 20180205
  Receipt Date: 20180205
  Transmission Date: 20180509
  Serious: Yes (Other)
  Sender: FDA-Public Use
  Company Number: US-BAYER-2018-019285

PATIENT
  Age: 48 Year
  Sex: Male
  Weight: 136 kg

DRUGS (1)
  1. MIRALAX [Suspect]
     Active Substance: POLYETHYLENE GLYCOL 3350
     Indication: FLUID RETENTION
     Dosage: UNK UNK, QD

REACTIONS (2)
  - Drug dependence [Unknown]
  - Drug effective for unapproved indication [Unknown]
